FAERS Safety Report 14008174 (Version 1)
Quarter: 2017Q3

REPORT INFORMATION
  Report Type: Report from Study
  Country: CZ (occurrence: CZ)
  Receive Date: 20170925
  Receipt Date: 20170925
  Transmission Date: 20171128
  Serious: Yes (Other)
  Sender: FDA-Public Use
  Company Number: CZ-JNJFOC-20170921022

PATIENT
  Age: 48 Year
  Sex: Male

DRUGS (3)
  1. SIMPONI [Suspect]
     Active Substance: GOLIMUMAB
     Indication: ANKYLOSING SPONDYLITIS
     Route: 058
     Dates: start: 20110606
  2. ATROPINE. [Concomitant]
     Active Substance: ATROPINE
     Route: 065
  3. ADRENALINE [Concomitant]
     Active Substance: EPINEPHRINE
     Route: 065

REACTIONS (2)
  - Uveitis [Recovering/Resolving]
  - Herpes virus infection [Unknown]

NARRATIVE: CASE EVENT DATE: 20170627
